FAERS Safety Report 9655973 (Version 1)
Quarter: 2013Q4

REPORT INFORMATION
  Report Type: Spontaneous
  Country: US (occurrence: None)
  Receive Date: 20131029
  Receipt Date: 20131029
  Transmission Date: 20140711
  Serious: No
  Sender: FDA-Public Use
  Company Number: None

PATIENT
  Age: 41 Year
  Sex: Female
  Weight: 129.28 kg

DRUGS (1)
  1. HUMIRA [Suspect]
     Indication: ANKYLOSING SPONDYLITIS
     Dosage: 1 INJECTION EVERY OTHER WEEK
     Dates: start: 20121117, end: 20130920

REACTIONS (5)
  - Lupus-like syndrome [None]
  - Fatigue [None]
  - Dyspnoea [None]
  - Pain [None]
  - Psoriasis [None]
